FAERS Safety Report 9011518 (Version 2)
Quarter: 2013Q1

REPORT INFORMATION
  Report Type: Report from Study
  Country: AU (occurrence: AU)
  Receive Date: 20130108
  Receipt Date: 20130123
  Transmission Date: 20140127
  Serious: Yes (Hospitalization, Other)
  Sender: FDA-Public Use
  Company Number: AU-JNJFOC-20121202822

PATIENT
  Age: 28 Year
  Sex: Female

DRUGS (6)
  1. HALDOL [Suspect]
     Indication: MYOCLONUS
     Dosage: 0.5-2 MG DAILY, STARTED AT 8/40 WEEKS CEASED AT 12/40 WEEKS,  TOTAL 4 WEEKS
     Route: 048
  2. HALDOL [Suspect]
     Indication: PSYCHOTIC DISORDER
     Dosage: 0.5-2 MG DAILY, STARTED AT 8/40 WEEKS CEASED AT 12/40 WEEKS,  TOTAL 4 WEEKS
     Route: 048
  3. QUETIAPINE [Suspect]
     Indication: PSYCHOTIC DISORDER
     Dosage: 50-100 MG DAILY, PRE-PREGNANCY EXPOSED IN GESTATIONAL WEEKS OF 38-40
     Route: 048
  4. CHLORPROMAZINE [Suspect]
     Indication: PSYCHOTIC DISORDER
     Dosage: STARTED PRE-PREGNANCY, EXPOSED IN GESTATIONAL WEEKS OF 28-40 AND STOPPED AT 28-40 WEEKS
     Route: 048
  5. LITHIUM [Suspect]
     Indication: DRUG THERAPY
     Dosage: STARTED AT 28/40 WEEKS, EXPOSED IN GESTATIONAL WEEKS OF 10/40 AND STOPPED AT 24 HOURS OF PRE BIRTH
     Route: 048
  6. BLACKMORES PREGNANCY + BREAST-FEEDING [Suspect]
     Indication: NUTRITIONAL SUPPLEMENTATION
     Dosage: START DATE 1ST TRIMESTER, EXPOSED IN GESTATIONAL WEEKS OF 38/40 AND ENDED AT BIRTH
     Route: 048

REACTIONS (5)
  - Gestational diabetes [Recovered/Resolved]
  - Convulsion [Recovered/Resolved]
  - Mania [Recovered/Resolved]
  - Exposure during pregnancy [Recovered/Resolved]
  - Tremor [Recovered/Resolved]
